FAERS Safety Report 7029461-9 (Version None)
Quarter: 2010Q4

REPORT INFORMATION
  Report Type: 
  Country: None (occurrence: None)
  Receive Date: 20101005
  Receipt Date: 20100928
  Transmission Date: 20110411
  Serious: Yes (Other)
  Sender: FDA-Public Use
  Company Number: FR-AMGEN-QUU441338

PATIENT
  Sex: Male

DRUGS (3)
  1. NEULASTA [Suspect]
     Indication: CHEMOTHERAPY
     Route: 058
     Dates: start: 20100821, end: 20100821
  2. ETOPOSIDE [Concomitant]
     Dates: start: 20100816
  3. HOLOXAN [Concomitant]
     Dates: start: 20100816

REACTIONS (2)
  - PRURITUS [None]
  - RASH [None]
